FAERS Safety Report 5622037-7 (Version None)
Quarter: 2008Q1

REPORT INFORMATION
  Report Type: 
  Country: None (occurrence: None)
  Receive Date: 20080211
  Receipt Date: 20080131
  Transmission Date: 20080703
  Serious: Yes (Hospitalization)
  Sender: FDA-Public Use
  Company Number: US-JNJFOC-20080200127

PATIENT
  Sex: Female
  Weight: 35.45 kg

DRUGS (4)
  1. INFLIXIMAB [Suspect]
     Indication: PROCTITIS
     Route: 042
  2. INFLIXIMAB [Suspect]
     Indication: CROHN'S DISEASE
     Route: 042
  3. 5-ASA [Concomitant]
     Route: 048
  4. PREDNISONE TAB [Concomitant]

REACTIONS (1)
  - ABSCESS [None]
